FAERS Safety Report 4269878-9 (Version None)
Quarter: 2004Q1

REPORT INFORMATION
  Report Type: 
  Country: None (occurrence: None)
  Receive Date: 20040112
  Receipt Date: 20040112
  Transmission Date: 20041129
  Serious: Yes (Hospitalization)
  Sender: FDA-Public Use
  Company Number: None

PATIENT
  Age: 44 Year
  Sex: Male
  Weight: 72.3 kg

DRUGS (3)
  1. STAVUDINE (D4T) [Suspect]
     Indication: HIV INFECTION
     Dosage: 20MG, 20MG QD, ORAL
     Route: 048
     Dates: start: 20021217, end: 20031110
  2. DIDANOSINE [Concomitant]
  3. EFAVIRENZ [Concomitant]

REACTIONS (2)
  - HEPATIC ENZYME INCREASED [None]
  - LACTIC ACIDOSIS [None]
